FAERS Safety Report 9229975 (Version 1)
Quarter: 2013Q1

REPORT INFORMATION
  Report Type: Spontaneous
  Country: US (occurrence: None)
  Receive Date: 20121022
  Receipt Date: 20121022
  Transmission Date: 20140127
  Serious: Yes (Hospitalization)
  Sender: FDA-Public Use
  Company Number: 2010S1000394

PATIENT
  Age: 70 Year
  Sex: Male

DRUGS (8)
  1. DARVOCET-N [Suspect]
     Route: 048
     Dates: start: 2008, end: 20101122
  2. BETAPACE (SOTALOL HYDROCHLORIDE) [Concomitant]
  3. COUMADIN [Concomitant]
  4. LOVENOX (INJECTION) [Concomitant]
  5. VASORETIC (VASERETIC) [Concomitant]
  6. SIMVASTATIN (SIMVASTATIN) [Concomitant]
  7. NAPROSYN [Concomitant]
  8. MULTIVITAMIN [Concomitant]

REACTIONS (1)
  - Atrial flutter [None]
